FAERS Safety Report 7530684-0 (Version None)
Quarter: 2011Q2

REPORT INFORMATION
  Report Type: 
  Country: None (occurrence: None)
  Receive Date: 20110607
  Receipt Date: 20060810
  Transmission Date: 20111010
  Serious: Yes (Hospitalization, Other)
  Sender: FDA-Public Use
  Company Number: CA-GENENTECH-319892

PATIENT
  Sex: Male
  Weight: 102 kg

DRUGS (1)
  1. XOLAIR [Suspect]
     Indication: ASTHMA
     Dosage: 375 MG, UNKNOWN
     Route: 058
     Dates: start: 20051117

REACTIONS (2)
  - CHEST PAIN [None]
  - CHEST DISCOMFORT [None]
